FAERS Safety Report 17550375 (Version 3)
Quarter: 2022Q3

REPORT INFORMATION
  Report Type: Spontaneous
  Country: US (occurrence: US)
  Receive Date: 20200317
  Receipt Date: 20220805
  Transmission Date: 20221027
  Serious: No
  Sender: FDA-Public Use
  Company Number: US-VERTEX PHARMACEUTICALS-2020-005701

PATIENT
  Sex: Female
  Weight: 68 kg

DRUGS (2)
  1. KALYDECO [Suspect]
     Active Substance: IVACAFTOR
     Indication: Cystic fibrosis
     Dosage: 150 MG, BID (WITH FAT-CONTAINING FOODS, FULL DOSE)
     Route: 048
     Dates: start: 20170908
  2. KALYDECO [Suspect]
     Active Substance: IVACAFTOR
     Dosage: 150 MG EVERY OTHER DAY (QAM, MODIFIED DOSE)
     Route: 048
     Dates: start: 20190923

REACTIONS (1)
  - Diarrhoea [Recovering/Resolving]
